FAERS Safety Report 7422676-7 (Version None)
Quarter: 2011Q2

REPORT INFORMATION
  Report Type: 
  Country: None (occurrence: None)
  Receive Date: 20110419
  Receipt Date: 20110408
  Transmission Date: 20111010
  Serious: Yes (Life-Threatening, Hospitalization)
  Sender: FDA-Public Use
  Company Number: KR-ELI_LILLY_AND_COMPANY-KR201104003399

PATIENT
  Age: 42 Year
  Sex: Female

DRUGS (4)
  1. DIAZEPAM [Concomitant]
     Dosage: 4 MG, QD
  2. WARFARIN [Concomitant]
     Dosage: 3 MG, QD
  3. OLANZAPINE [Suspect]
     Indication: PSYCHOTIC DISORDER
     Dosage: 2.5 MG, QD
  4. VALPROIC ACID [Concomitant]
     Dosage: 300 MG, BID

REACTIONS (5)
  - ELECTROCARDIOGRAM QT PROLONGED [None]
  - TORSADE DE POINTES [None]
  - CONVULSION [None]
  - ATRIOVENTRICULAR BLOCK COMPLETE [None]
  - PROTHROMBIN TIME PROLONGED [None]
